FAERS Safety Report 5371022-1 (Version None)
Quarter: 2007Q2

REPORT INFORMATION
  Report Type: 
  Country: None (occurrence: None)
  Receive Date: 20070618
  Receipt Date: 20070315
  Transmission Date: 20071010
  Serious: Yes (Other)
  Sender: FDA-Public Use
  Company Number: PHEH2007US03134

PATIENT
  Age: 62 Year
  Sex: Male

DRUGS (3)
  1. GLEEVEC [Suspect]
     Dosage: 400 MG, QD, ORAL
     Route: 048
     Dates: start: 20061101, end: 20061201
  2. HYDREA [Concomitant]
  3. AGRYLIN [Concomitant]

REACTIONS (1)
  - STEVENS-JOHNSON SYNDROME [None]
